FAERS Safety Report 7004644-2 (Version None)
Quarter: 2010Q3

REPORT INFORMATION
  Report Type: 
  Country: None (occurrence: None)
  Receive Date: 20100921
  Receipt Date: 20100910
  Transmission Date: 20110219
  Serious: No
  Sender: FDA-Public Use
  Company Number: US-US-EMD SERONO, INC.-7008519

PATIENT
  Sex: Female
  Weight: 48 kg

DRUGS (3)
  1. REBIF [Suspect]
     Indication: MULTIPLE SCLEROSIS
     Route: 058
     Dates: start: 20100311
  2. KLONOPIN [Concomitant]
     Indication: TREMOR
  3. NUVIGIL [Concomitant]

REACTIONS (9)
  - ANTINUCLEAR ANTIBODY INCREASED [None]
  - BLOOD IRON DECREASED [None]
  - CHEST DISCOMFORT [None]
  - CHILLS [None]
  - GASTROOESOPHAGEAL REFLUX DISEASE [None]
  - HYPERHIDROSIS [None]
  - INJECTION SITE PAIN [None]
  - VITAMIN B12 DECREASED [None]
  - VITAMIN B6 DECREASED [None]
